FAERS Safety Report 8615443-X (Version None)
Quarter: 2012Q3

REPORT INFORMATION
  Report Type: 
  Country: None (occurrence: None)
  Receive Date: 20120823
  Receipt Date: 20120813
  Transmission Date: 20120928
  Serious: Yes (Other)
  Sender: FDA-Public Use
  Company Number: DE-JNJFOC-20120811177

PATIENT
  Sex: Female
  Weight: 77 kg

DRUGS (8)
  1. XARELTO [Suspect]
     Indication: THROMBOSIS
     Route: 048
     Dates: end: 20120730
  2. XARELTO [Suspect]
     Route: 048
     Dates: end: 20120730
  3. ASPIRIN [Concomitant]
  4. ALL OTHER THERAPEUTIC PRODUCTS [Concomitant]
     Indication: THROMBOSIS PROPHYLAXIS
     Dates: end: 20120612
  5. XARELTO [Suspect]
     Indication: EMBOLISM VENOUS
     Route: 048
     Dates: start: 20120612
  6. XARELTO [Suspect]
     Route: 048
     Dates: start: 20120612
  7. IBUPROFEN [Concomitant]
     Indication: PAIN MANAGEMENT
     Route: 048
  8. PANTOPRAZOLE [Concomitant]
     Indication: PAIN MANAGEMENT

REACTIONS (3)
  - CIRCULATORY COLLAPSE [None]
  - DIZZINESS [None]
  - NAUSEA [None]
